FAERS Safety Report 10243749 (Version 3)
Quarter: 2014Q3

REPORT INFORMATION
  Report Type: Spontaneous
  Country: JP (occurrence: JP)
  Receive Date: 20140618
  Receipt Date: 20140715
  Transmission Date: 20150326
  Serious: Yes (Life-Threatening, Hospitalization, Disabling, Other)
  Sender: FDA-Public Use
  Company Number: JP-CELGENEUS-087-21660-14062496

PATIENT
  Age: 62 Year
  Sex: Male
  Weight: 48 kg

DRUGS (11)
  1. WARFARIN POTASSIUM [Concomitant]
     Active Substance: WARFARIN POTASSIUM
     Indication: PULMONARY ARTERY THROMBOSIS
     Dosage: 4 MILLIGRAM
     Route: 048
     Dates: start: 20140513, end: 20140523
  2. MORPHINE HYDROCHLORIDE HYDRATE [Concomitant]
     Active Substance: MORPHINE HYDROCHLORIDE
     Indication: SEDATION
  3. G-CSF [Concomitant]
     Active Substance: FILGRASTIM
     Indication: PRODUCT USED FOR UNKNOWN INDICATION
     Dosage: 75 MICROGRAM
     Route: 065
     Dates: start: 20140602, end: 20140609
  4. ABRAXANE [Suspect]
     Active Substance: PACLITAXEL
     Indication: LUNG NEOPLASM MALIGNANT
     Dosage: 143 MILLIGRAM
     Route: 041
     Dates: start: 20140520, end: 20140520
  5. ABRAXANE [Suspect]
     Active Substance: PACLITAXEL
     Dosage: 100 MILLIGRAM/SQ. METER
     Route: 041
     Dates: start: 201406, end: 201406
  6. MORPHINE HYDROCHLORIDE HYDRATE [Concomitant]
     Active Substance: MORPHINE HYDROCHLORIDE
     Indication: PAIN MANAGEMENT
     Dosage: 10 UNITS
     Route: 065
     Dates: start: 20140621
  7. CEFEPIME [Concomitant]
     Active Substance: CEFEPIME\CEFEPIME HYDROCHLORIDE
     Indication: PRODUCT USED FOR UNKNOWN INDICATION
     Dosage: 4 GRAM
     Route: 065
     Dates: start: 20140602, end: 20140611
  8. CARBOPLATIN. [Suspect]
     Active Substance: CARBOPLATIN
     Indication: LUNG NEOPLASM MALIGNANT
     Dosage: 711 MILLIGRAM
     Route: 041
     Dates: start: 20140520
  9. DORMICUM [Concomitant]
     Active Substance: MIDAZOLAM\MIDAZOLAM HYDROCHLORIDE
     Indication: SEDATION
  10. CARBOPLATIN. [Suspect]
     Active Substance: CARBOPLATIN
     Dosage: AUC 6
     Route: 041
     Dates: start: 201406, end: 201406
  11. DORMICUM [Concomitant]
     Active Substance: MIDAZOLAM\MIDAZOLAM HYDROCHLORIDE
     Indication: PAIN MANAGEMENT
     Dosage: 10 UNITS
     Route: 065
     Dates: start: 20140621

REACTIONS (9)
  - Febrile neutropenia [Recovered/Resolved]
  - Cardiac failure [Recovering/Resolving]
  - Anaemia [Recovering/Resolving]
  - Neutrophil count decreased [Recovering/Resolving]
  - Pneumothorax [Not Recovered/Not Resolved]
  - Neuropathy peripheral [Recovered/Resolved with Sequelae]
  - Intentional product misuse [Unknown]
  - Leukopenia [Recovered/Resolved]
  - Platelet count decreased [Recovering/Resolving]

NARRATIVE: CASE EVENT DATE: 20140520
